FAERS Safety Report 4919816-8 (Version None)
Quarter: 2006Q1

REPORT INFORMATION
  Report Type: 
  Country: None (occurrence: None)
  Receive Date: 20060216
  Receipt Date: 20060130
  Transmission Date: 20060701
  Serious: Yes (Hospitalization, Other)
  Sender: FDA-Public Use
  Company Number: FR200601004391

PATIENT
  Age: 82 Year
  Sex: Female

DRUGS (6)
  1. FORTEO [Suspect]
     Indication: OSTEOPOROSIS
     Dosage: 20 ?G, DAILY (1/D), SUBCUTANEOUS
     Route: 058
     Dates: start: 20051001, end: 20060110
  2. FORTEO PEN (FOETEO PEN) [Concomitant]
  3. ... [Concomitant]
  4. AVLOCARDYL (PROPRANOL) [Concomitant]
  5. DIOSMINIL (DIOSMIN) [Concomitant]
  6. OROCAL (CALCIUM CARBONATE) [Concomitant]

REACTIONS (9)
  - CYTOLYTIC HEPATITIS [None]
  - EPISTAXIS [None]
  - FALL [None]
  - HYPERTENSION [None]
  - MALAISE [None]
  - RIB FRACTURE [None]
  - STERNAL FRACTURE [None]
  - SUPRAVENTRICULAR EXTRASYSTOLES [None]
  - SYNCOPE VASOVAGAL [None]
